FAERS Safety Report 5710532-1 (Version None)
Quarter: 2008Q2

REPORT INFORMATION
  Report Type: 
  Country: None (occurrence: None)
  Receive Date: 20080415
  Receipt Date: 20080401
  Transmission Date: 20081010
  Serious: Yes (Other)
  Sender: FDA-Public Use
  Company Number: 2008US000960

PATIENT
  Age: 54 Year
  Sex: Male

DRUGS (1)
  1. AMEVIVE [Suspect]
     Indication: PSORIASIS
     Dosage: PARENTERAL
     Route: 051

REACTIONS (2)
  - ANKLE FRACTURE [None]
  - IMPAIRED HEALING [None]
